FAERS Safety Report 10243198 (Version 3)
Quarter: 2014Q3

REPORT INFORMATION
  Report Type: Spontaneous
  Country: IT (occurrence: IT)
  Receive Date: 20140618
  Receipt Date: 20140723
  Transmission Date: 20150326
  Serious: Yes (Other)
  Sender: FDA-Public Use
  Company Number: IT-ASTRAZENECA-2014SE40891

PATIENT
  Age: 18913 Day
  Sex: Female

DRUGS (7)
  1. PRAZEPAM [Concomitant]
     Active Substance: PRAZEPAM
     Indication: ANXIETY
     Route: 048
  2. RAMIPRIL. [Interacting]
     Active Substance: RAMIPRIL
     Indication: HYPERTENSION
     Route: 048
     Dates: start: 20130926, end: 20140131
  3. CARDIRENE [Suspect]
     Active Substance: ASPIRIN DL-LYSINE
     Indication: HAEMANGIOMA OF SKIN
     Route: 048
     Dates: start: 20050424, end: 20140131
  4. ANTRA [Suspect]
     Active Substance: OMEPRAZOLE
     Indication: PROPHYLAXIS AGAINST GASTROINTESTINAL ULCER
     Route: 048
     Dates: start: 20030310, end: 20140131
  5. MELOXICAM. [Interacting]
     Active Substance: MELOXICAM
     Indication: CHEST PAIN
     Route: 048
     Dates: start: 20101103
  6. MELOXICAM. [Interacting]
     Active Substance: MELOXICAM
     Indication: CHEST PAIN
     Route: 048
     Dates: start: 20140101, end: 20140130
  7. RAMIPRIL. [Interacting]
     Active Substance: RAMIPRIL
     Indication: HYPERTENSION
     Route: 048

REACTIONS (4)
  - Hyperchlorhydria [Recovered/Resolved]
  - Hypertension [Recovered/Resolved]
  - Presyncope [Recovered/Resolved]
  - Drug interaction [Recovered/Resolved]

NARRATIVE: CASE EVENT DATE: 20140131
